FAERS Safety Report 16381586 (Version 2)
Quarter: 2019Q3

REPORT INFORMATION
  Report Type: Spontaneous
  Country: US (occurrence: US)
  Receive Date: 20190603
  Receipt Date: 20190911
  Transmission Date: 20191004
  Serious: No
  Sender: FDA-Public Use
  Company Number: US-BIOGEN-2019BI00745306

PATIENT
  Age: 54 Year
  Sex: Female

DRUGS (2)
  1. TECFIDERA [Suspect]
     Active Substance: DIMETHYL FUMARATE
     Indication: MULTIPLE SCLEROSIS
     Route: 048
     Dates: start: 20181030
  2. TECFIDERA [Suspect]
     Active Substance: DIMETHYL FUMARATE
     Route: 065
     Dates: start: 20181107

REACTIONS (16)
  - Induration [Unknown]
  - Joint fluid drainage [Unknown]
  - Multiple sclerosis relapse [Not Recovered/Not Resolved]
  - Skin discolouration [Unknown]
  - Tendonitis [Unknown]
  - Weight bearing difficulty [Unknown]
  - Peripheral swelling [Unknown]
  - Cyst rupture [Recovered/Resolved]
  - Product dose omission [Unknown]
  - Musculoskeletal disorder [Unknown]
  - Hyperaesthesia [Unknown]
  - Insomnia [Unknown]
  - Muscle spasms [Unknown]
  - Joint swelling [Unknown]
  - Arthralgia [Unknown]
  - Fall [Recovered/Resolved]

NARRATIVE: CASE EVENT DATE: 20190301
